FAERS Safety Report 8493294-7 (Version None)
Quarter: 2012Q3

REPORT INFORMATION
  Report Type: 
  Country: None (occurrence: None)
  Receive Date: 20120706
  Receipt Date: 20120625
  Transmission Date: 20120928
  Serious: Yes (Death)
  Sender: FDA-Public Use
  Company Number: JP-ROCHE-1059412

PATIENT
  Sex: Female
  Weight: 53 kg

DRUGS (4)
  1. PREDNISOLONE [Concomitant]
     Indication: CASTLEMAN'S DISEASE
     Route: 048
     Dates: start: 20111109, end: 20120329
  2. POLARAMINE [Concomitant]
     Indication: PROPHYLAXIS
     Route: 042
     Dates: start: 20120328, end: 20120328
  3. ACTEMRA [Suspect]
     Indication: CASTLEMAN'S DISEASE
     Route: 041
     Dates: start: 20120328, end: 20120328
  4. HYDROCORTISONE SODIUM SUCCINATE [Concomitant]
     Indication: PROPHYLAXIS
     Route: 042
     Dates: start: 20120328, end: 20120328

REACTIONS (2)
  - CASTLEMAN'S DISEASE [None]
  - CARDIAC FAILURE [None]
